FAERS Safety Report 12493483 (Version 1)
Quarter: 2016Q2

REPORT INFORMATION
  Report Type: Spontaneous
  Country: US (occurrence: US)
  Receive Date: 20160623
  Receipt Date: 20160623
  Transmission Date: 20160815
  Serious: Yes (Other)
  Sender: FDA-Public Use
  Company Number: US-UNITED THERAPEUTICS-UNT-2016-009616

PATIENT
  Age: 75 Year
  Sex: Male
  Weight: 93.42 kg

DRUGS (1)
  1. TYVASO [Suspect]
     Active Substance: TREPROSTINIL
     Indication: PULMONARY ARTERIAL HYPERTENSION
     Dosage: 18-54 ?G, QID
     Dates: start: 20160603

REACTIONS (6)
  - Fall [Unknown]
  - Heart rate irregular [Unknown]
  - Productive cough [Not Recovered/Not Resolved]
  - Fatigue [Unknown]
  - Dyspnoea [Unknown]
  - Lip injury [Unknown]

NARRATIVE: CASE EVENT DATE: 201606
